FAERS Safety Report 13732455 (Version 3)
Quarter: 2020Q1

REPORT INFORMATION
  Report Type: Spontaneous
  Country: US (occurrence: US)
  Receive Date: 20170707
  Receipt Date: 20200130
  Transmission Date: 20200409
  Serious: No
  Sender: FDA-Public Use
  Company Number: US-SA-2017SA115153

PATIENT
  Age: 52 Year
  Sex: Female

DRUGS (3)
  1. DUPIXENT [Suspect]
     Active Substance: DUPILUMAB
     Indication: DERMATITIS ALLERGIC
     Dosage: UNK UNK,1X
     Route: 065
     Dates: start: 201704, end: 201704
  2. DUPIXENT [Suspect]
     Active Substance: DUPILUMAB
     Dosage: 300 MG, Q4W
     Route: 058
  3. DUPIXENT [Suspect]
     Active Substance: DUPILUMAB
     Indication: ECZEMA
     Dosage: 300 MG,QOW
     Route: 058

REACTIONS (8)
  - Pruritus [Not Recovered/Not Resolved]
  - Conjunctivitis [Unknown]
  - Hyperaesthesia [Not Recovered/Not Resolved]
  - Product use issue [Unknown]
  - Therapeutic response unexpected [Unknown]
  - Off label use [Unknown]
  - Pruritus [Not Recovered/Not Resolved]
  - Herpes simplex [Unknown]

NARRATIVE: CASE EVENT DATE: 2017
